FAERS Safety Report 4412925-1 (Version None)
Quarter: 2004Q3

REPORT INFORMATION
  Report Type: 
  Country: None (occurrence: None)
  Receive Date: 20040728
  Receipt Date: 20040705
  Transmission Date: 20050211
  Serious: Yes (Life-Threatening, Hospitalization)
  Sender: FDA-Public Use
  Company Number: M2004.0914

PATIENT
  Age: 90 Year
  Sex: Female

DRUGS (6)
  1. ATENOLOL [Suspect]
     Indication: HYPERTENSION
     Dosage: 1 OM
     Dates: start: 20040329, end: 20040406
  2. TIMOPTOL 0.5% (TIMOLOL) [Suspect]
     Indication: GLAUCOMA
     Dosage: BD BOTH EYES
     Dates: start: 20020815, end: 20040406
  3. BENDROFLUAZIDE 2.5MG [Concomitant]
  4. PARACETAMOL [Concomitant]
  5. SENNA [Concomitant]
  6. PLANTAGO  PSYLLIUM [Concomitant]

REACTIONS (5)
  - ATRIOVENTRICULAR BLOCK [None]
  - BRADYCARDIA [None]
  - PAIN [None]
  - PERIPHERAL COLDNESS [None]
  - THROMBOSIS [None]
